FAERS Safety Report 10047410 (Version 2)
Quarter: 2014Q2

REPORT INFORMATION
  Report Type: Spontaneous
  Country: VE (occurrence: VE)
  Receive Date: 20140331
  Receipt Date: 20140418
  Transmission Date: 20141212
  Serious: Yes (Death)
  Sender: FDA-Public Use
  Company Number: VE-JNJFOC-20140314642

PATIENT
  Age: 91 Year
  Sex: Male

DRUGS (6)
  1. XARELTO [Suspect]
     Indication: THROMBOSIS PROPHYLAXIS
     Route: 048
     Dates: start: 20140228, end: 20140307
  2. XARELTO [Suspect]
     Indication: HIP SURGERY
     Route: 048
     Dates: start: 20140228, end: 20140307
  3. CANDESARTAN [Concomitant]
     Indication: HYPERTENSION
     Route: 048
  4. ADALAT OROS [Concomitant]
     Indication: HYPERTENSION
     Route: 048
  5. KETOSTERIL [Concomitant]
     Indication: RENAL FAILURE
     Route: 065
  6. INSULIN ZINC SUSPENSION [Concomitant]
     Route: 065

REACTIONS (3)
  - Pulmonary embolism [Fatal]
  - Dyspnoea [Unknown]
  - Off label use [Unknown]
